FAERS Safety Report 7201881-9 (Version None)
Quarter: 2010Q4

REPORT INFORMATION
  Report Type: 
  Country: None (occurrence: None)
  Receive Date: 20101229
  Receipt Date: 20101221
  Transmission Date: 20110411
  Serious: Yes (Other)
  Sender: FDA-Public Use
  Company Number: CA-JNJFOC-20101208297

PATIENT
  Sex: Female
  Weight: 104.5 kg

DRUGS (3)
  1. REMICADE [Suspect]
     Indication: RHEUMATOID ARTHRITIS
     Dosage: TOTAL 19 INFUSIONS
     Route: 042
  2. MICARDIS [Concomitant]
     Route: 048
  3. WARFARIN [Concomitant]
     Dosage: DEPENDING ON INR
     Route: 048

REACTIONS (1)
  - BASAL CELL CARCINOMA [None]
